FAERS Safety Report 19477625 (Version 2)
Quarter: 2021Q3

REPORT INFORMATION
  Report Type: Spontaneous
  Country: BR (occurrence: BR)
  Receive Date: 20210630
  Receipt Date: 20210923
  Transmission Date: 20211014
  Serious: Yes (Other)
  Sender: FDA-Public Use
  Company Number: BR-TAKEDA-2021TUS040681

PATIENT

DRUGS (3)
  1. VENVANSE [Suspect]
     Active Substance: LISDEXAMFETAMINE DIMESYLATE
     Indication: ATTENTION DEFICIT HYPERACTIVITY DISORDER
     Dosage: UNK
     Route: 065
  2. METHYLPHENIDATE HYDROCHLORIDE. [Suspect]
     Active Substance: METHYLPHENIDATE HYDROCHLORIDE
     Indication: ATTENTION DEFICIT HYPERACTIVITY DISORDER
     Dosage: UNK
     Route: 065
  3. DESVENLAFAXINE. [Concomitant]
     Active Substance: DESVENLAFAXINE
     Route: 065

REACTIONS (3)
  - Crying [Unknown]
  - Drug dependence [Unknown]
  - Drug withdrawal syndrome [Unknown]
